FAERS Safety Report 9314173 (Version 3)
Quarter: 2014Q1

REPORT INFORMATION
  Report Type: Spontaneous
  Country: JP (occurrence: None)
  Receive Date: 20130521
  Receipt Date: 20140320
  Transmission Date: 20141002
  Serious: Yes (Hospitalization, Other)
  Sender: FDA-Public Use
  Company Number: 2013RR-69112

PATIENT
  Age: 33 Year
  Sex: Male
  Weight: 43 kg

DRUGS (4)
  1. RANITIDINE (RANITIDINE) [Suspect]
     Indication: CROHN^S DISEASE
  2. MESALAZINE [Suspect]
     Indication: CROHN^S DISEASE
  3. INFLIXIMAB (INFLIXIMAB) [Concomitant]
  4. POTASSIUM CHLORIDE (POTASSIUM CHLORIDE) [Concomitant]

REACTIONS (2)
  - Tubulointerstitial nephritis [None]
  - Renal failure [None]
